FAERS Safety Report 5854211-9 (Version None)
Quarter: 2008Q3

REPORT INFORMATION
  Report Type: 
  Country: None (occurrence: None)
  Receive Date: 20080822
  Receipt Date: 20080815
  Transmission Date: 20090109
  Serious: Yes (Other)
  Sender: FDA-Public Use
  Company Number: PHHY2008BR18268

PATIENT
  Age: 65 Year
  Sex: Male
  Weight: 75 kg

DRUGS (6)
  1. FORASEQ [Suspect]
     Indication: DYSPNOEA
     Dosage: UNK
     Dates: start: 20080713
  2. PREDSIM [Concomitant]
     Indication: DYSPNOEA
     Dosage: 1 TAB BID
     Route: 048
  3. HIDRION (FUROSEMIDE/POTASSIUM HYDROCHLORIDE) [Concomitant]
     Indication: HYPERTENSION
     Dosage: 1/2 TAB/DAY
  4. DIGOXIN [Concomitant]
     Indication: HYPERTENSION
     Dosage: 1 TAB/DAY
     Route: 048
  5. DIOVAN [Concomitant]
     Indication: HYPERTENSION
     Dosage: 1 TAB/DAY
     Route: 048
  6. OMEPRAZOLE [Concomitant]
     Indication: STOMACH DISCOMFORT
     Dosage: 1 TAB, BID
     Route: 048

REACTIONS (5)
  - GASTRIC DISORDER [None]
  - INTESTINAL FUNCTIONAL DISORDER [None]
  - JOINT SWELLING [None]
  - LIVER DISORDER [None]
  - OEDEMA PERIPHERAL [None]
